FAERS Safety Report 13763780 (Version 3)
Quarter: 2017Q3

REPORT INFORMATION
  Report Type: Spontaneous
  Country: FR (occurrence: FR)
  Receive Date: 20170718
  Receipt Date: 20170817
  Transmission Date: 20171127
  Serious: Yes (Other)
  Sender: FDA-Public Use
  Company Number: FR-AMGEN-FRASP2017105587

PATIENT
  Age: 62 Year
  Sex: Female
  Weight: 44 kg

DRUGS (6)
  1. ADVAGRAF [Concomitant]
     Active Substance: TACROLIMUS
  2. KARDEGIC [Concomitant]
     Active Substance: ASPIRIN LYSINE
  3. COZAAR [Concomitant]
     Active Substance: LOSARTAN POTASSIUM
  4. ZOCOR [Concomitant]
     Active Substance: SIMVASTATIN
  5. PROLIA [Suspect]
     Active Substance: DENOSUMAB
     Indication: OSTEOPOROSIS
     Dosage: 60 MG, Q6MO
     Route: 058
     Dates: start: 201601, end: 201701
  6. RISEDRONATE [Suspect]
     Active Substance: RISEDRONATE SODIUM
     Indication: PRODUCT USED FOR UNKNOWN INDICATION
     Dosage: UNK , QWK (35 UNITS)
     Route: 065
     Dates: start: 2012, end: 201601

REACTIONS (1)
  - Atypical femur fracture [Recovering/Resolving]

NARRATIVE: CASE EVENT DATE: 201612
